FAERS Safety Report 8868825 (Version 2)
Quarter: 2012Q4

REPORT INFORMATION
  Report Type: 
  Country: US (occurrence: US)
  Receive Date: 20121026
  Receipt Date: 20121204
  Transmission Date: 20130627
  Serious: No
  Sender: FDA-Public Use
  Company Number: US-AMGEN-USASP2012047564

PATIENT
  Age: 65 Year
  Sex: Female
  Weight: 71.2 kg

DRUGS (2)
  1. ENBREL [Suspect]
     Indication: PSORIATIC ARTHROPATHY
     Dosage: 50 mg, 2 times/wk
     Route: 058
     Dates: start: 20091013
  2. ORENCIA [Concomitant]
     Dosage: UNK

REACTIONS (9)
  - Asthenia [Not Recovered/Not Resolved]
  - Muscle spasms [Not Recovered/Not Resolved]
  - Muscle tightness [Not Recovered/Not Resolved]
  - Myalgia [Not Recovered/Not Resolved]
  - Psoriatic arthropathy [Not Recovered/Not Resolved]
  - Oedema peripheral [Not Recovered/Not Resolved]
  - Muscle twitching [Not Recovered/Not Resolved]
  - Gait disturbance [Not Recovered/Not Resolved]
  - Paraesthesia [Not Recovered/Not Resolved]
